FAERS Safety Report 16988923 (Version 2)
Quarter: 2020Q1

REPORT INFORMATION
  Report Type: Spontaneous
  Country: US (occurrence: US)
  Receive Date: 20191104
  Receipt Date: 20200310
  Transmission Date: 20200409
  Serious: No
  Sender: FDA-Public Use
  Company Number: US-FARMAPROD-201909-1514

PATIENT
  Sex: Female

DRUGS (2)
  1. OXERVATE [Suspect]
     Active Substance: CENEGERMIN-BKBJ
     Indication: NEUROTROPHIC KERATOPATHY
     Route: 047
     Dates: start: 20190905, end: 20191017
  2. ERYTHROMYCIN. [Concomitant]
     Active Substance: ERYTHROMYCIN
     Indication: DRY EYE
     Route: 047
     Dates: end: 20191017

REACTIONS (2)
  - Dry eye [Recovered/Resolved]
  - Eye pain [Recovering/Resolving]
